FAERS Safety Report 7652551-4 (Version None)
Quarter: 2011Q3

REPORT INFORMATION
  Report Type: 
  Country: None (occurrence: None)
  Receive Date: 20110803
  Receipt Date: 20110725
  Transmission Date: 20111222
  Serious: Yes (Death, Other)
  Sender: FDA-Public Use
  Company Number: US-BRISTOL-MYERS SQUIBB COMPANY-15921273

PATIENT
  Sex: Female

DRUGS (10)
  1. DOXORUBICIN HCL [Suspect]
     Indication: BONE SARCOMA
     Dosage: ADDITIONAL 2 CYCLES ADMINISTERED  COMPLETED IN 1991 REDUCED TO 25MG/M2 TO 16MG/M2
  2. METHOTREXATE [Suspect]
     Indication: BONE SARCOMA
     Dosage: ADDITIONAL 2 CYCLES ADMINISTERED  COMPLETED IN 1991
  3. ALEMTUZUMAB [Suspect]
     Indication: MYELODYSPLASTIC SYNDROME
  4. IFOSFAMIDE [Suspect]
     Indication: BONE SARCOMA
     Dosage: ADDITIONAL 2 CYCLES ADMINISTERED  COMPLETED IN 1991 DECREASED TO 1800 TO 1100MG/M2
  5. DECITABINE [Suspect]
     Indication: MYELODYSPLASTIC SYNDROME
     Dosage: 1 COURSE
  6. MELPHALAN HYDROCHLORIDE [Suspect]
     Indication: MYELODYSPLASTIC SYNDROME
  7. FLUDARABINE PHOSPHATE [Suspect]
     Indication: MYELODYSPLASTIC SYNDROME
     Dates: start: 20060701
  8. ETOPOSIDE [Suspect]
     Indication: BONE SARCOMA
  9. TACROLIMUS [Suspect]
     Indication: PROPHYLAXIS AGAINST GRAFT VERSUS HOST DISEASE
  10. CYTARABINE [Suspect]
     Indication: MYELODYSPLASTIC SYNDROME
     Dates: start: 20060701

REACTIONS (2)
  - ACUTE MYELOID LEUKAEMIA [None]
  - MYELODYSPLASTIC SYNDROME [None]
